FAERS Safety Report 4768583-X (Version None)
Quarter: 2005Q3

REPORT INFORMATION
  Report Type: 
  Country: None (occurrence: None)
  Receive Date: 20050914
  Receipt Date: 20050907
  Transmission Date: 20060218
  Serious: Yes (Death)
  Sender: FDA-Public Use
  Company Number: US-JNJFOC-20050902079

PATIENT
  Age: 60 Year
  Sex: Female

DRUGS (5)
  1. ACETAMINOPHEN [Suspect]
     Route: 048
  2. ACETAMINOPHEN [Suspect]
     Route: 048
  3. ACETAMINOPHEN, ASPIRIN AND CAFFEINE [Suspect]
     Route: 048
  4. ACETAMINOPHEN, ASPIRIN AND CAFFEINE [Suspect]
     Route: 048
  5. ACETAMINOPHEN, ASPIRIN AND CAFFEINE [Suspect]
     Route: 048

REACTIONS (2)
  - HEPATIC FUNCTION ABNORMAL [None]
  - INTENTIONAL MISUSE [None]
